FAERS Safety Report 18485513 (Version 5)
Quarter: 2021Q3

REPORT INFORMATION
  Report Type: Spontaneous
  Country: US (occurrence: US)
  Receive Date: 20201110
  Receipt Date: 20210809
  Transmission Date: 20211014
  Serious: Yes (Disabling, Other)
  Sender: FDA-Public Use
  Company Number: US-SA-2020SA313438

PATIENT
  Age: 65 Year
  Sex: Female

DRUGS (1)
  1. DUPIXENT [Suspect]
     Active Substance: DUPILUMAB
     Indication: DERMATITIS ATOPIC
     Dosage: 300 MG, QOW
     Route: 058
     Dates: start: 20201002

REACTIONS (7)
  - Psoriasis [Unknown]
  - Headache [Recovering/Resolving]
  - Alopecia [Unknown]
  - Drug ineffective [Unknown]
  - Blindness unilateral [Unknown]
  - Pruritus [Unknown]
  - Cataract [Recovering/Resolving]

NARRATIVE: CASE EVENT DATE: 20201105
